FAERS Safety Report 7733034-X (Version None)
Quarter: 2011Q3

REPORT INFORMATION
  Report Type: 
  Country: None (occurrence: None)
  Receive Date: 20110902
  Receipt Date: 20110902
  Transmission Date: 20111222
  Serious: Yes (Life-Threatening)
  Sender: FDA-Public Use
  Company Number: None

PATIENT
  Sex: Male
  Weight: 69.8539 kg

DRUGS (1)
  1. ALLOPURINOL [Suspect]
     Indication: GOUT
     Dosage: 1 PER DAY
     Dates: start: 20110627, end: 20110726

REACTIONS (6)
  - RASH GENERALISED [None]
  - WEIGHT DECREASED [None]
  - STOMATITIS [None]
  - GASTRIC ULCER [None]
  - AGEUSIA [None]
  - DYSPHAGIA [None]
